FAERS Safety Report 14246532 (Version 1)
Quarter: 2017Q4

REPORT INFORMATION
  Report Type: Spontaneous
  Country: US (occurrence: US)
  Receive Date: 20171201
  Receipt Date: 20171201
  Transmission Date: 20180321
  Serious: Yes (Hospitalization, Disabling, Other)
  Sender: FDA-Public Use
  Company Number: None

PATIENT
  Sex: Female
  Weight: 60.75 kg

DRUGS (12)
  1. OPANA ER [Suspect]
     Active Substance: OXYMORPHONE HYDROCHLORIDE
     Indication: COMPLEX REGIONAL PAIN SYNDROME
     Dosage: ?          QUANTITY:1 TABLET(S);?
     Route: 048
     Dates: start: 20150415, end: 20150728
  2. ATIVAN [Concomitant]
     Active Substance: LORAZEPAM
  3. FLONASE [Concomitant]
     Active Substance: FLUTICASONE PROPIONATE
  4. MAALOX W/ ANTIGAS [Concomitant]
  5. CYCLOBENZAPRINE. [Concomitant]
     Active Substance: CYCLOBENZAPRINE
  6. BEVESPI AEROSPHERE [Concomitant]
     Active Substance: FORMOTEROL FUMARATE\GLYCOPYRROLATE
  7. TYLENOL [Concomitant]
     Active Substance: ACETAMINOPHEN
  8. LISINIPRIL [Concomitant]
     Active Substance: LISINOPRIL
  9. HCT [Concomitant]
     Active Substance: HYDROCHLOROTHIAZIDE
  10. VENTALIN HFA [Concomitant]
  11. MELATONIN [Concomitant]
     Active Substance: MELATONIN
  12. CRANBERRY. [Concomitant]
     Active Substance: CRANBERRY

REACTIONS (7)
  - Dementia [None]
  - Cognitive disorder [None]
  - Stress [None]
  - Urinary tract infection [None]
  - Sepsis [None]
  - Hypoaesthesia [None]
  - Amnesia [None]

NARRATIVE: CASE EVENT DATE: 20150728
